FAERS Safety Report 5312097-5 (Version None)
Quarter: 2007Q2

REPORT INFORMATION
  Report Type: 
  Country: None (occurrence: None)
  Receive Date: 20070430
  Receipt Date: 20060626
  Transmission Date: 20071010
  Serious: No
  Sender: FDA-Public Use
  Company Number: 2006UW13450

PATIENT
  Age: 63 Year
  Sex: Male
  Weight: 70.3 kg

DRUGS (5)
  1. NEXIUM [Suspect]
     Indication: GASTROOESOPHAGEAL REFLUX DISEASE
     Route: 048
     Dates: start: 20060401
  2. DIAZEPAM [Concomitant]
  3. TYLENOL W/ CODEINE [Concomitant]
  4. ZOCOR [Concomitant]
  5. VITAMINS [Concomitant]

REACTIONS (3)
  - INCREASED BRONCHIAL SECRETION [None]
  - ORAL DISCOMFORT [None]
  - SINUS CONGESTION [None]
